FAERS Safety Report 20447801 (Version 1)
Quarter: 2022Q1

REPORT INFORMATION
  Report Type: Spontaneous
  Country: US (occurrence: US)
  Receive Date: 20220209
  Receipt Date: 20220209
  Transmission Date: 20220424
  Serious: Yes (Death, Other)
  Sender: FDA-Public Use
  Company Number: US-SA-SAC20220204001694

PATIENT
  Age: 66 Year
  Sex: Male

DRUGS (1)
  1. ZANTAC [Suspect]
     Active Substance: RANITIDINE HYDROCHLORIDE
     Indication: Gastrooesophageal reflux disease
     Dosage: UNK
     Dates: start: 199701, end: 201301

REACTIONS (3)
  - Bladder cancer stage II [Fatal]
  - Lung neoplasm malignant [Fatal]
  - Urethral cancer [Fatal]

NARRATIVE: CASE EVENT DATE: 20060220
